FAERS Safety Report 9949159 (Version 5)
Quarter: 2014Q2

REPORT INFORMATION
  Report Type: Spontaneous
  Country: JP (occurrence: JP)
  Receive Date: 20140304
  Receipt Date: 20140604
  Transmission Date: 20141212
  Serious: Yes (Other)
  Sender: FDA-Public Use
  Company Number: JP-AMGEN-JPNSP2014014937

PATIENT
  Age: 76 Year
  Sex: Female

DRUGS (8)
  1. PRALIA [Suspect]
     Indication: OSTEOPOROSIS
     Dosage: 60 MG, Q6MO
     Route: 058
     Dates: start: 20130816, end: 20140207
  2. PRALIA [Suspect]
     Indication: RHEUMATOID ARTHRITIS
  3. ACTEMRA [Concomitant]
     Indication: RHEUMATOID ARTHRITIS
     Dosage: 330 MG, QMO
     Route: 041
  4. MAINTATE [Concomitant]
     Dosage: 2.5 MG, QD
     Route: 048
  5. LOSARTAN POTASSIUM W/HYDROCHLOROTHIAZIDE [Concomitant]
     Dosage: 1 DF, QD
     Route: 048
  6. NU-LOTAN [Concomitant]
     Dosage: 25 MG, QD
     Route: 048
  7. LIPITOR [Concomitant]
     Dosage: 10 MG, QD
     Route: 048
  8. RULID [Concomitant]
     Dosage: 150 MG, QD
     Route: 048

REACTIONS (1)
  - Osteonecrosis of jaw [Not Recovered/Not Resolved]
